FAERS Safety Report 7398666-X (Version None)
Quarter: 2011Q2

REPORT INFORMATION
  Report Type: 
  Country: None (occurrence: None)
  Receive Date: 20110407
  Receipt Date: 20110331
  Transmission Date: 20111010
  Serious: No
  Sender: FDA-Public Use
  Company Number: US-BIOGENIDEC-2011BI012334

PATIENT
  Age: 39 Year
  Sex: Female

DRUGS (2)
  1. AVONEX [Concomitant]
     Indication: MULTIPLE SCLEROSIS
     Route: 030
     Dates: start: 19991022
  2. TYSABRI [Suspect]
     Indication: MULTIPLE SCLEROSIS
     Route: 042
     Dates: start: 20080318

REACTIONS (5)
  - MUSCULAR WEAKNESS [None]
  - MOBILITY DECREASED [None]
  - PARAESTHESIA [None]
  - MUSCULOSKELETAL DISORDER [None]
  - GAIT DISTURBANCE [None]
